FAERS Safety Report 13461590 (Version 1)
Quarter: 2017Q2

REPORT INFORMATION
  Report Type: Spontaneous
  Country: US (occurrence: US)
  Receive Date: 20170419
  Receipt Date: 20170419
  Transmission Date: 20170830
  Serious: No
  Sender: FDA-Public Use
  Company Number: None

PATIENT
  Age: 67 Year
  Sex: Male

DRUGS (1)
  1. IMATINIB 400MG RANBAXY [Suspect]
     Active Substance: IMATINIB
     Indication: GASTROINTESTINAL CARCINOMA
     Route: 048
     Dates: start: 20161111

REACTIONS (6)
  - Arthralgia [None]
  - Myalgia [None]
  - Lacrimation increased [None]
  - Swelling face [None]
  - Headache [None]
  - Joint swelling [None]

NARRATIVE: CASE EVENT DATE: 20170330
